FAERS Safety Report 10182054 (Version 1)
Quarter: 2014Q2

REPORT INFORMATION
  Report Type: Spontaneous
  Country: US (occurrence: US)
  Receive Date: 20140519
  Receipt Date: 20140519
  Transmission Date: 20141212
  Serious: Yes (Other)
  Sender: FDA-Public Use
  Company Number: US-BAYER-2014-070237

PATIENT
  Age: 43 Year
  Sex: Female
  Weight: 89.8 kg

DRUGS (3)
  1. ALEVE CAPLET [Suspect]
     Indication: ANALGESIC THERAPY
     Dosage: 1 DF, PRN
     Route: 048
     Dates: start: 20140502, end: 20140508
  2. ZANTAC [Concomitant]
  3. ZYRTEC [Concomitant]

REACTIONS (1)
  - Vulvovaginal mycotic infection [Not Recovered/Not Resolved]
